FAERS Safety Report 6370710-8 (Version None)
Quarter: 2009Q3

REPORT INFORMATION
  Report Type: 
  Country: None (occurrence: None)
  Receive Date: 20090923
  Receipt Date: 20070605
  Transmission Date: 20100115
  Serious: Yes (Other)
  Sender: FDA-Public Use
  Company Number: US-ASTRAZENECA-2006UW25136

PATIENT
  Age: 39 Year
  Sex: Male
  Weight: 81.6 kg

DRUGS (18)
  1. SEROQUEL [Suspect]
     Route: 048
     Dates: start: 19970101
  2. SEROQUEL [Suspect]
     Dosage: 25-200 MG
     Route: 048
     Dates: start: 20010330
  3. ABILIFY [Concomitant]
  4. CLOZARIL [Concomitant]
  5. GEODON [Concomitant]
  6. HALDOL [Concomitant]
     Dates: start: 19860101, end: 19990101
  7. NAVANE [Concomitant]
  8. RISPERDAL [Concomitant]
  9. ZYPREXA [Concomitant]
  10. LITHOBID [Concomitant]
     Route: 048
     Dates: start: 19870101
  11. TRIHEXYPHENIDYL HCL [Concomitant]
     Dates: start: 20000417
  12. VISTARIL [Concomitant]
  13. AMBIEN [Concomitant]
  14. PAXIL [Concomitant]
  15. AMANTADINE HCL [Concomitant]
  16. ATIVAN [Concomitant]
  17. VITAMIN E [Concomitant]
  18. TRILEPTAL [Concomitant]

REACTIONS (1)
  - TARDIVE DYSKINESIA [None]
